FAERS Safety Report 5612329-X (Version None)
Quarter: 2008Q1

REPORT INFORMATION
  Report Type: 
  Country: None (occurrence: None)
  Receive Date: 20080204
  Receipt Date: 20080130
  Transmission Date: 20080703
  Serious: Yes (Death, Hospitalization)
  Sender: FDA-Public Use
  Company Number: JP-AVENTIS-200810190JP

PATIENT
  Age: 72 Year
  Sex: Female
  Weight: 51 kg

DRUGS (7)
  1. TAXOTERE [Suspect]
     Route: 042
     Dates: start: 20071030, end: 20071030
  2. HYPEN [Concomitant]
     Route: 048
     Dates: start: 20070626, end: 20071112
  3. PARIET [Concomitant]
     Route: 048
     Dates: start: 20070626, end: 20071112
  4. OPSO [Concomitant]
     Route: 048
     Dates: start: 20071030, end: 20071112
  5. KYTRIL                             /01178101/ [Concomitant]
     Indication: PREMEDICATION
  6. DECADRON [Concomitant]
     Indication: PREMEDICATION
  7. NAVELBINE [Concomitant]
     Dates: start: 20070601, end: 20071001

REACTIONS (6)
  - ANOREXIA [None]
  - ARTHRALGIA [None]
  - DIARRHOEA [None]
  - PYREXIA [None]
  - RENAL FAILURE [None]
  - WHITE BLOOD CELL COUNT DECREASED [None]
